FAERS Safety Report 11403610 (Version 1)
Quarter: 2015Q3

REPORT INFORMATION
  Report Type: Spontaneous
  Country: US (occurrence: US)
  Receive Date: 20150821
  Receipt Date: 20150821
  Transmission Date: 20151125
  Serious: Yes (Hospitalization, Other)
  Sender: FDA-Public Use
  Company Number: US-TEVA-558255USA

PATIENT
  Sex: Male

DRUGS (1)
  1. ISONIAZID. [Suspect]
     Active Substance: ISONIAZID
     Indication: LATENT TUBERCULOSIS
     Dosage: 300 MILLIGRAM DAILY;
     Route: 048
     Dates: start: 20150213, end: 20150421

REACTIONS (2)
  - Hepatic encephalopathy [Unknown]
  - Ammonia increased [Unknown]

NARRATIVE: CASE EVENT DATE: 2015
